FAERS Safety Report 18544452 (Version 5)
Quarter: 2021Q2

REPORT INFORMATION
  Report Type: Spontaneous
  Country: JP (occurrence: JP)
  Receive Date: 20201125
  Receipt Date: 20210531
  Transmission Date: 20210717
  Serious: Yes (Other)
  Sender: FDA-Public Use
  Company Number: JP-GLAXOSMITHKLINE-JP2020JPN172631

PATIENT
  Age: 76 Year
  Sex: Male
  Weight: 69.3 kg

DRUGS (5)
  1. NIFEDIPINE CR TABLETS [Concomitant]
     Indication: HYPERTENSION
     Dosage: UNK
     Route: 048
     Dates: start: 19970820
  2. CANDESARTAN CILEXETIL TABLET [Concomitant]
     Indication: HYPERTENSION
     Dosage: UNK
     Route: 048
     Dates: start: 19970820
  3. SERETIDE [Suspect]
     Active Substance: FLUTICASONE PROPIONATE\SALMETEROL XINAFOATE
     Indication: ASTHMA
     Dosage: 500 ?G, BID
     Route: 055
     Dates: start: 201202, end: 201712
  4. SERETIDE [Concomitant]
     Active Substance: FLUTICASONE PROPIONATE\SALMETEROL XINAFOATE
     Indication: ASTHMA
     Dosage: UNK
     Route: 055
     Dates: start: 201712
  5. SILODOSIN. [Concomitant]
     Active Substance: SILODOSIN
     Indication: BENIGN PROSTATIC HYPERPLASIA
     Dosage: UNK
     Route: 048
     Dates: start: 20091027

REACTIONS (7)
  - Colon cancer [Unknown]
  - Diabetes mellitus [Unknown]
  - Gastric cancer [Unknown]
  - Spinal compression fracture [Recovered/Resolved]
  - Prostate cancer [Unknown]
  - Pneumonia [Unknown]
  - Osteoporosis [Recovering/Resolving]

NARRATIVE: CASE EVENT DATE: 20161206
